FAERS Safety Report 21676897 (Version 1)
Quarter: 2022Q4

REPORT INFORMATION
  Report Type: Spontaneous
  Country: NL (occurrence: NL)
  Receive Date: 20221203
  Receipt Date: 20221203
  Transmission Date: 20230112
  Serious: Yes (Other)
  Sender: FDA-Public Use
  Company Number: None

PATIENT
  Sex: Male
  Weight: 79 kg

DRUGS (1)
  1. DIAZEPAM [Suspect]
     Active Substance: DIAZEPAM
     Indication: Stress
     Dosage: BRAND NAME NOT SPECIFIED, FORM STRENGTH : 10 MG, THERAPY END DATE : ASKU, FREQUENCY TIME : 1 DAY
     Route: 065
     Dates: start: 20221017

REACTIONS (7)
  - Pneumonia [Recovering/Resolving]
  - Fatigue [Recovering/Resolving]
  - Headache [Recovered/Resolved]
  - Nausea [Recovered/Resolved]
  - Pyrexia [Recovered/Resolved]
  - Vomiting [Recovered/Resolved]
  - Malaise [Recovering/Resolving]
